FAERS Safety Report 16407909 (Version 1)
Quarter: 2019Q2

REPORT INFORMATION
  Report Type: Spontaneous
  Country: US (occurrence: US)
  Receive Date: 20190610
  Receipt Date: 20190610
  Transmission Date: 20190711
  Serious: No
  Sender: FDA-Public Use
  Company Number: US-AUROBINDO-AUR-APL-2019-015128

PATIENT

DRUGS (4)
  1. MACROBID [Concomitant]
     Active Substance: NITROFURANTOIN\NITROFURANTOIN MONOHYDRATE
     Indication: PROPHYLAXIS
     Dosage: 100 MILLIGRAM, ONCE A DAY
     Route: 048
     Dates: start: 2018
  2. VENLAFAXINE EXTENDED RELEASE CAPSULE [Suspect]
     Active Substance: VENLAFAXINE HYDROCHLORIDE
     Dosage: 75 MILLIGRAM, ONCE A DAY
     Route: 048
     Dates: start: 20190108, end: 201901
  3. NAPROXEN. [Concomitant]
     Active Substance: NAPROXEN
     Indication: ANTIINFLAMMATORY THERAPY
     Dosage: 500 MILLIGRAM, DAILY
     Route: 048
     Dates: start: 2017, end: 20190110
  4. VENLAFAXINE EXTENDED RELEASE CAPSULE [Suspect]
     Active Substance: VENLAFAXINE HYDROCHLORIDE
     Indication: ANXIETY
     Dosage: 37.5 MILLIGRAM, TWO TIMES A DAY
     Route: 048

REACTIONS (6)
  - Nightmare [Recovered/Resolved]
  - Depression [Not Recovered/Not Resolved]
  - Abnormal dreams [Recovered/Resolved]
  - Feeling abnormal [Not Recovered/Not Resolved]
  - Bedridden [Recovered/Resolved]
  - Tachyphrenia [Not Recovered/Not Resolved]

NARRATIVE: CASE EVENT DATE: 2018
